FAERS Safety Report 11247510 (Version 1)
Quarter: 2015Q2

REPORT INFORMATION
  Report Type: Spontaneous
  Country: US (occurrence: None)
  Receive Date: 20150617
  Receipt Date: 20150617
  Transmission Date: 20150821
  Serious: No
  Sender: FDA-Public Use
  Company Number: 2014TASUS000456

PATIENT
  Age: 72 Year
  Sex: Male
  Weight: 97.5 kg

DRUGS (3)
  1. ASPIRIN (ACETYLSALICYLIC ACID) [Concomitant]
     Active Substance: ASPIRIN
  2. CARDIZEM (DILTIAZEM HYDROCHLORIDE) [Concomitant]
  3. HETLIOZ [Suspect]
     Active Substance: TASIMELTEON
     Indication: CIRCADIAN RHYTHM SLEEP DISORDER
     Dosage: 20 MG, QD AT 10 PM, ORAL
     Route: 048

REACTIONS (3)
  - Pollakiuria [None]
  - Sleep disorder [None]
  - Constipation [None]
